FAERS Safety Report 11629042 (Version 1)
Quarter: 2015Q4

REPORT INFORMATION
  Report Type: Spontaneous
  Country: US (occurrence: US)
  Receive Date: 20151014
  Receipt Date: 20151014
  Transmission Date: 20160304
  Serious: No
  Sender: FDA-Public Use
  Company Number: US-UNIQUE PHARMACEUTICAL LABORATORIES-2014PAC00041

PATIENT
  Sex: Male
  Weight: 104.31 kg

DRUGS (5)
  1. KEYBIOTICS [Concomitant]
  2. CETIRIZINE HYDROCHLORIDE. [Suspect]
     Active Substance: CETIRIZINE HYDROCHLORIDE
     Indication: MULTIPLE ALLERGIES
     Dosage: 5 MG, 2X/DAY
     Route: 048
  3. UNSPECIFIED PROBIOTICS [Concomitant]
  4. UNSPECIFIED BLOOD PRESSURE MEDICATIONS [Concomitant]
     Dosage: 10 UNK, UNK
  5. VITAMIN B12 [Concomitant]
     Active Substance: CYANOCOBALAMIN

REACTIONS (1)
  - Drug ineffective [Not Recovered/Not Resolved]

NARRATIVE: CASE EVENT DATE: 2014
